FAERS Safety Report 23741538 (Version 2)
Quarter: 2024Q2

REPORT INFORMATION
  Report Type: Other
  Country: US (occurrence: US)
  Receive Date: 20240415
  Receipt Date: 20240514
  Transmission Date: 20240716
  Serious: No
  Sender: FDA-Public Use
  Company Number: US-APOTEX-2024AP004291

PATIENT
  Sex: Male

DRUGS (1)
  1. LENALIDOMIDE [Suspect]
     Active Substance: LENALIDOMIDE
     Indication: Plasma cell myeloma
     Dosage: UNK UNK, QD, FOR 21 DAYS ON THEN 7 DAYS OFF
     Route: 065

REACTIONS (5)
  - Therapeutic response changed [Unknown]
  - Product substitution issue [Unknown]
  - Paraesthesia [Unknown]
  - Muscular weakness [Unknown]
  - White blood cell count decreased [Unknown]
